FAERS Safety Report 16197997 (Version 1)
Quarter: 2019Q2

REPORT INFORMATION
  Report Type: Report from Study
  Country: US (occurrence: US)
  Receive Date: 20190415
  Receipt Date: 20190415
  Transmission Date: 20190711
  Serious: Yes (Other)
  Sender: FDA-Public Use
  Company Number: US-SA-2019SA101757

PATIENT
  Age: 48 Year
  Sex: Female

DRUGS (3)
  1. INSULIN GLARGINE [Suspect]
     Active Substance: INSULIN GLARGINE
     Indication: TYPE 2 DIABETES MELLITUS
     Dosage: 100 U, UNK
     Dates: start: 20190325
  2. OZEMPIC [Concomitant]
     Active Substance: SEMAGLUTIDE
     Dosage: UNK UNK, UNK
  3. HUMALOG [Concomitant]
     Active Substance: INSULIN LISPRO
     Dosage: UNK UNK, UNK

REACTIONS (4)
  - Sluggishness [Unknown]
  - Wrong technique in product usage process [Unknown]
  - Blood glucose decreased [Unknown]
  - Hyperhidrosis [Unknown]

NARRATIVE: CASE EVENT DATE: 20190325
